FAERS Safety Report 6735662-7 (Version None)
Quarter: 2010Q2

REPORT INFORMATION
  Report Type: 
  Country: None (occurrence: None)
  Receive Date: 20100521
  Receipt Date: 20100517
  Transmission Date: 20101027
  Serious: Yes (Hospitalization, Other)
  Sender: FDA-Public Use
  Company Number: PHHY2010DE27114

PATIENT
  Age: 37 Year
  Sex: Male

DRUGS (6)
  1. LEPONEX [Suspect]
     Indication: SCHIZOPHRENIA
     Dosage: UNK
     Route: 048
     Dates: start: 20040101
  2. LEPONEX [Suspect]
     Dosage: 500 MG/DAY
     Route: 048
     Dates: end: 20100423
  3. LEPONEX [Suspect]
     Dosage: UNK
     Dates: start: 20100429
  4. HALDOL [Concomitant]
     Dosage: UNK MBQ, UNK
     Route: 048
  5. PROMETHAZINE [Concomitant]
     Dosage: UNK
  6. LITHIUM [Concomitant]
     Dosage: UNK MG, UNK
     Route: 048

REACTIONS (2)
  - MONONUCLEOSIS SYNDROME [None]
  - NEUTROPENIA [None]
